FAERS Safety Report 18540754 (Version 2)
Quarter: 2020Q4

REPORT INFORMATION
  Report Type: Report from Study
  Country: US (occurrence: US)
  Receive Date: 20201124
  Receipt Date: 20201216
  Transmission Date: 20210114
  Serious: Yes (Other)
  Sender: FDA-Public Use
  Company Number: US-JNJFOC-20201009769

PATIENT
  Age: 56 Year
  Sex: Female

DRUGS (4)
  1. OPSUMIT [Suspect]
     Active Substance: MACITENTAN
     Indication: PULMONARY ARTERIAL HYPERTENSION
     Route: 048
     Dates: start: 20201012, end: 20201020
  2. OPSUMIT [Suspect]
     Active Substance: MACITENTAN
     Route: 048
     Dates: start: 20201027, end: 20201105
  3. OPSUMIT [Suspect]
     Active Substance: MACITENTAN
     Route: 048
     Dates: start: 20201023, end: 20201027
  4. OPSUMIT [Suspect]
     Active Substance: MACITENTAN
     Dosage: OPSUMIT AS ONE 10 MG TABLET BY MOUTH EVERY OTHER DAY TEMPORARILY,  THE PATIENT IS GOING TO RESUME O
     Route: 048

REACTIONS (9)
  - Peripheral swelling [Unknown]
  - Limb discomfort [Unknown]
  - Suicidal ideation [Recovered/Resolved]
  - Depression [Recovered/Resolved]
  - Oedema peripheral [Unknown]
  - Dyspnoea [Unknown]
  - Illness [Unknown]
  - Gait disturbance [Unknown]
  - Underdose [Unknown]

NARRATIVE: CASE EVENT DATE: 202010
